FAERS Safety Report 8494949-0 (Version None)
Quarter: 2012Q3

REPORT INFORMATION
  Report Type: 
  Country: None (occurrence: None)
  Receive Date: 20120709
  Receipt Date: 20120629
  Transmission Date: 20120928
  Serious: Yes (Other)
  Sender: FDA-Public Use
  Company Number: BE-BRISTOL-MYERS SQUIBB COMPANY-16654394

PATIENT
  Age: 61 Year
  Sex: Male

DRUGS (1)
  1. YERVOY [Suspect]
     Dates: start: 20111227

REACTIONS (2)
  - HYPERSENSITIVITY [None]
  - HERPES ZOSTER [None]
